FAERS Safety Report 24103544 (Version 1)
Quarter: 2024Q3

REPORT INFORMATION
  Report Type: Spontaneous
  Country: TR (occurrence: TR)
  Receive Date: 20240717
  Receipt Date: 20240717
  Transmission Date: 20241016
  Serious: Yes (Hospitalization)
  Sender: ROCHE
  Company Number: TR-002147023-NVSC2024TR142690

PATIENT
  Age: 27 Year
  Sex: Female

DRUGS (2)
  1. XOLAIR [Suspect]
     Active Substance: OMALIZUMAB
     Indication: Urticaria
     Dosage: 150 MG, 28D (ONCE EVERY 28 DAYS)
     Route: 065
  2. XOLAIR [Suspect]
     Active Substance: OMALIZUMAB
     Dosage: UNK (50-55 DAYS)
     Route: 065

REACTIONS (4)
  - Urticaria [Unknown]
  - Illness [Unknown]
  - Product supply issue [Unknown]
  - Off label use [Unknown]
